FAERS Safety Report 7425596-7 (Version None)
Quarter: 2011Q2

REPORT INFORMATION
  Report Type: 
  Country: None (occurrence: None)
  Receive Date: 20110420
  Receipt Date: 20100804
  Transmission Date: 20111010
  Serious: No
  Sender: FDA-Public Use
  Company Number: US-ASTRAZENECA-2010SE36577

PATIENT
  Sex: Female

DRUGS (2)
  1. CASODEX [Suspect]
     Indication: PROSTATE CANCER
     Route: 048
     Dates: start: 19950101
  2. CASODEX [Suspect]
     Route: 048

REACTIONS (1)
  - ADVERSE EVENT [None]
